FAERS Safety Report 12942573 (Version 2)
Quarter: 2016Q4

REPORT INFORMATION
  Report Type: Spontaneous
  Country: US (occurrence: US)
  Receive Date: 20161114
  Receipt Date: 20161219
  Transmission Date: 20170207
  Serious: No
  Sender: FDA-Public Use
  Company Number: US-ASTRAZENECA-2016SF11580

PATIENT
  Age: 438 Month
  Sex: Female
  Weight: 69.4 kg

DRUGS (3)
  1. SYMBICORT [Suspect]
     Active Substance: BUDESONIDE\FORMOTEROL FUMARATE DIHYDRATE
     Indication: BRONCHITIS CHRONIC
     Dosage: 160/4.5 MCG 120 INHALATIONS, TWO TIMES A DAY
     Route: 055
     Dates: start: 2016
  2. SYMBICORT [Suspect]
     Active Substance: BUDESONIDE\FORMOTEROL FUMARATE DIHYDRATE
     Indication: BRONCHITIS CHRONIC
     Dosage: 160/4.5 MCG 120 INHALATIONS, TWO TIMES A DAY
     Route: 055
     Dates: start: 20161016
  3. ALLERGY SHOTS [Concomitant]
     Active Substance: UNSPECIFIED INGREDIENT
     Dosage: WEEKLY

REACTIONS (3)
  - Device failure [Unknown]
  - Asthenia [Not Recovered/Not Resolved]
  - Intentional product misuse [Unknown]

NARRATIVE: CASE EVENT DATE: 201610
